FAERS Safety Report 23332676 (Version 1)
Quarter: 2023Q4

REPORT INFORMATION
  Report Type: Spontaneous
  Country: US (occurrence: US)
  Receive Date: 20231222
  Receipt Date: 20231222
  Transmission Date: 20240110
  Serious: Yes (Other)
  Sender: FDA-Public Use
  Company Number: US-BRISTOL-MYERS SQUIBB COMPANY-2023-184890

PATIENT
  Age: 22 Year
  Sex: Female

DRUGS (1)
  1. NIVOLUMAB [Suspect]
     Active Substance: NIVOLUMAB
     Indication: Adrenocortical carcinoma

REACTIONS (3)
  - Thyroiditis [Unknown]
  - Hypothyroidism [Unknown]
  - Off label use [Unknown]
